FAERS Safety Report 23904863 (Version 2)
Quarter: 2024Q4

REPORT INFORMATION
  Report Type: Spontaneous
  Country: US (occurrence: US)
  Receive Date: 20240527
  Receipt Date: 20241126
  Transmission Date: 20250115
  Serious: No
  Sender: CALLIDITAS THERAPEUTICS AB
  Company Number: US-Calliditas-2024CAL00778

PATIENT
  Age: 50 Year
  Sex: Male
  Weight: 108 kg

DRUGS (1)
  1. TARPEYO [Suspect]
     Active Substance: BUDESONIDE
     Indication: IgA nephropathy
     Route: 048
     Dates: start: 202403, end: 202409

REACTIONS (7)
  - Lethargy [Unknown]
  - Abdominal distension [Unknown]
  - Dysgeusia [Unknown]
  - Thirst [Unknown]
  - Weight increased [Unknown]
  - Increased appetite [Unknown]
  - Dry skin [Unknown]
